FAERS Safety Report 19575730 (Version 1)
Quarter: 2021Q3

REPORT INFORMATION
  Report Type: Spontaneous
  Country: US (occurrence: US)
  Receive Date: 20210716
  Receipt Date: 20210716
  Transmission Date: 20211014
  Serious: Yes (Hospitalization)
  Sender: FDA-Public Use
  Company Number: None

PATIENT
  Age: 51 Year
  Sex: Male
  Weight: 74.5 kg

DRUGS (3)
  1. BLINATUMOMAB 56MCG [Suspect]
     Active Substance: BLINATUMOMAB
     Indication: FALL
     Dosage: 28MCG CONT. INFUSION INTRAVENOUSLY
     Route: 042
     Dates: start: 20210705, end: 20210715
  2. ACYCLOVIR. [Concomitant]
     Active Substance: ACYCLOVIR
  3. BACTRIM [Concomitant]
     Active Substance: SULFAMETHOXAZOLE\TRIMETHOPRIM

REACTIONS (4)
  - Nausea [None]
  - Fatigue [None]
  - Diplopia [None]
  - Gait disturbance [None]

NARRATIVE: CASE EVENT DATE: 20210715
